FAERS Safety Report 6585117-8 (Version None)
Quarter: 2010Q1

REPORT INFORMATION
  Report Type: 
  Country: None (occurrence: None)
  Receive Date: 20100217
  Receipt Date: 20100208
  Transmission Date: 20100710
  Serious: Yes (Hospitalization)
  Sender: FDA-Public Use
  Company Number: FR-PFIZER INC-2010016032

PATIENT
  Age: 7 Year
  Sex: Female
  Weight: 25 kg

DRUGS (7)
  1. ZITHROMAX [Suspect]
     Indication: RESPIRATORY DISORDER
     Dosage: 40 MG/ML X3/WEEK
     Route: 048
     Dates: start: 20090801
  2. PROGRAF [Suspect]
     Indication: LIVER TRANSPLANT
     Dosage: 0.7 MG, 2X/DAY
  3. PROGRAF [Suspect]
     Dosage: 1.9 MG, 2X/DAY
     Dates: start: 20090901
  4. ZOVIRAX [Concomitant]
     Dosage: 400 X5 /DAY
  5. AMOXICILLIN [Concomitant]
     Indication: RESPIRATORY DISORDER
  6. CEFPODOXIME PROXETIL [Concomitant]
     Indication: RESPIRATORY DISORDER
  7. TAMIFLU [Concomitant]
     Indication: INFLUENZA
     Dosage: UNK
     Dates: start: 20090901, end: 20090901

REACTIONS (1)
  - TRANSPLANT REJECTION [None]
